FAERS Safety Report 17121912 (Version 1)
Quarter: 2019Q4

REPORT INFORMATION
  Report Type: Spontaneous
  Country: US (occurrence: US)
  Receive Date: 20191206
  Receipt Date: 20191206
  Transmission Date: 20200122
  Serious: Yes (Other)
  Sender: FDA-Public Use
  Company Number: US-BAUSCH-BL-2019-026499

PATIENT
  Age: 68 Year
  Sex: Female
  Weight: 41.31 kg

DRUGS (1)
  1. MURO 128 [Suspect]
     Active Substance: SODIUM CHLORIDE
     Indication: CORNEAL OEDEMA
     Dosage: ABOUT 17-18 YEARS AGO, AS NEEDED
     Route: 047
     Dates: end: 201909

REACTIONS (6)
  - Superficial injury of eye [Not Recovered/Not Resolved]
  - Product quality issue [Unknown]
  - Eye irritation [Recovered/Resolved]
  - Eye pain [Not Recovered/Not Resolved]
  - Product deposit [Unknown]
  - Blindness unilateral [Not Recovered/Not Resolved]

NARRATIVE: CASE EVENT DATE: 2019
